FAERS Safety Report 7349538-8 (Version None)
Quarter: 2011Q1

REPORT INFORMATION
  Report Type: 
  Country: None (occurrence: None)
  Receive Date: 20110225
  Receipt Date: 20101210
  Transmission Date: 20110831
  Serious: No
  Sender: FDA-Public Use
  Company Number: 318567

PATIENT
  Age: 60 Year
  Sex: Female

DRUGS (4)
  1. VICTOZA [Suspect]
     Indication: TYPE 2 DIABETES MELLITUS
     Dosage: 1.8 MG, BID, SUBCUTANEOUS, 1.2 MG, SUBCUTANEOUS
     Route: 058
     Dates: start: 20101021
  2. VICTOZA [Suspect]
     Indication: TYPE 2 DIABETES MELLITUS
     Dosage: 1.8 MG, BID, SUBCUTANEOUS, 1.2 MG, SUBCUTANEOUS
     Route: 058
     Dates: start: 20101108, end: 20101116
  3. VICTOZA [Suspect]
     Indication: TYPE 2 DIABETES MELLITUS
     Dosage: 1.8 MG, BID, SUBCUTANEOUS, 1.2 MG, SUBCUTANEOUS
     Route: 058
     Dates: start: 20100922, end: 20101107
  4. VICTOZA [Suspect]

REACTIONS (5)
  - DIARRHOEA [None]
  - BACK PAIN [None]
  - CONSTIPATION [None]
  - DRUG ADMINISTRATION ERROR [None]
  - NAUSEA [None]
